FAERS Safety Report 16839578 (Version 1)
Quarter: 2019Q4

REPORT INFORMATION
  Report Type: Spontaneous
  Country: US (occurrence: US)
  Receive Date: 20190922
  Receipt Date: 20190922
  Transmission Date: 20200122
  Serious: Yes (Disabling)
  Sender: FDA-Public Use
  Company Number: None

PATIENT
  Age: 61 Year
  Sex: Male
  Weight: 85.5 kg

DRUGS (15)
  1. ALFUZOSIN [Concomitant]
     Active Substance: ALFUZOSIN
  2. KLONOPIN [Concomitant]
     Active Substance: CLONAZEPAM
  3. BETHANECHOL CHLORIDE. [Suspect]
     Active Substance: BETHANECHOL CHLORIDE
     Indication: URINARY RETENTION
     Dosage: ?          QUANTITY:1 TABLET(S);?
     Route: 048
  4. LAMOTRIGINE. [Concomitant]
     Active Substance: LAMOTRIGINE
  5. ASA [Concomitant]
     Active Substance: ASPIRIN
  6. DOCUSATE SODIUM. [Concomitant]
     Active Substance: DOCUSATE SODIUM
  7. MELATONIN [Concomitant]
     Active Substance: MELATONIN
  8. BETHANECHOL [Concomitant]
     Active Substance: BETHANECHOL
  9. PRILOSEC [Concomitant]
     Active Substance: OMEPRAZOLE MAGNESIUM
  10. FLEXERIL [Concomitant]
     Active Substance: CYCLOBENZAPRINE HYDROCHLORIDE
  11. ELIQUIS [Concomitant]
     Active Substance: APIXABAN
  12. TRIAMTERENE HCTZ [Concomitant]
     Active Substance: HYDROCHLOROTHIAZIDE\TRIAMTERENE
  13. REQUIP [Concomitant]
     Active Substance: ROPINIROLE HYDROCHLORIDE
  14. NORCO [Concomitant]
     Active Substance: ACETAMINOPHEN\HYDROCODONE BITARTRATE
  15. AMOXIL [Concomitant]
     Active Substance: AMOXICILLIN

REACTIONS (4)
  - Urinary retention [None]
  - Incorrect dose administered [None]
  - Product substitution issue [None]
  - Product friable [None]

NARRATIVE: CASE EVENT DATE: 20190913
